FAERS Safety Report 7205145-9 (Version None)
Quarter: 2010Q4

REPORT INFORMATION
  Report Type: 
  Country: None (occurrence: None)
  Receive Date: 20101231
  Receipt Date: 20100907
  Transmission Date: 20110411
  Serious: Yes (Death, Hospitalization)
  Sender: FDA-Public Use
  Company Number: US-BIOGENIDEC-2010BI027290

PATIENT
  Age: 76 Year
  Sex: Female

DRUGS (1)
  1. TYSABRI [Suspect]
     Indication: MULTIPLE SCLEROSIS
     Route: 042
     Dates: start: 20090112, end: 20100511

REACTIONS (7)
  - BAND NEUTROPHIL COUNT INCREASED [None]
  - DEHYDRATION [None]
  - HYPERNATRAEMIA [None]
  - LEUKOCYTOSIS [None]
  - METABOLIC ENCEPHALOPATHY [None]
  - SEPSIS [None]
  - URINARY TRACT INFECTION [None]
